FAERS Safety Report 6168809-4 (Version None)
Quarter: 2009Q2

REPORT INFORMATION
  Report Type: 
  Country: None (occurrence: None)
  Receive Date: 20090424
  Receipt Date: 20090424
  Transmission Date: 20091009
  Serious: Yes (Hospitalization)
  Sender: FDA-Public Use
  Company Number: None

PATIENT
  Sex: Male
  Weight: 123.6 kg

DRUGS (3)
  1. METHOTREXATE [Suspect]
     Dosage: 30 MG
  2. PEG-L-ASPARAGINASE (K-H) [Suspect]
     Dosage: 12000 IU
  3. VINCRISTINE SULFATE [Suspect]
     Dosage: 18 MG

REACTIONS (9)
  - CULTURE STOOL POSITIVE [None]
  - DIARRHOEA [None]
  - DYSPHAGIA [None]
  - ENTEROCOCCAL INFECTION [None]
  - HYPOALBUMINAEMIA [None]
  - MUCOSAL INFLAMMATION [None]
  - NAUSEA [None]
  - PROCTALGIA [None]
  - VOMITING [None]
